FAERS Safety Report 6703522-3 (Version None)
Quarter: 2010Q2

REPORT INFORMATION
  Report Type: 
  Country: None (occurrence: None)
  Receive Date: 20100430
  Receipt Date: 20100419
  Transmission Date: 20101027
  Serious: Yes (Hospitalization)
  Sender: FDA-Public Use
  Company Number: PHHY2010CN25523

PATIENT
  Age: 62 Year
  Sex: Female

DRUGS (1)
  1. CARBAMAZEPINE [Suspect]
     Indication: HERPES ZOSTER
     Dosage: 0.1 G, TID
     Route: 048
     Dates: start: 20080718

REACTIONS (15)
  - BLISTER [None]
  - BODY TEMPERATURE INCREASED [None]
  - CONJUNCTIVAL HAEMORRHAGE [None]
  - CONJUNCTIVAL HYPERAEMIA [None]
  - CONJUNCTIVITIS [None]
  - EPIDERMOLYSIS BULLOSA [None]
  - ERYTHEMA [None]
  - ERYTHEMA OF EYELID [None]
  - EYELID OEDEMA [None]
  - GENERALISED ERYTHEMA [None]
  - LIP EROSION [None]
  - ORAL MUCOSA EROSION [None]
  - RASH MACULAR [None]
  - SKIN ULCER [None]
  - UPPER RESPIRATORY TRACT CONGESTION [None]
